FAERS Safety Report 12451593 (Version 3)
Quarter: 2016Q4

REPORT INFORMATION
  Report Type: Spontaneous
  Country: US (occurrence: US)
  Receive Date: 20160609
  Receipt Date: 20161115
  Transmission Date: 20170207
  Serious: No
  Sender: FDA-Public Use
  Company Number: US-GLAXOSMITHKLINE-US2016075225

PATIENT
  Age: 77 Year
  Sex: Female

DRUGS (9)
  1. DULOXETINE. [Concomitant]
     Active Substance: DULOXETINE
  2. FLOVENT DISKUS [Suspect]
     Active Substance: FLUTICASONE PROPIONATE
     Indication: PULMONARY THROMBOSIS
     Dosage: 1 PUFF(S), BID
     Route: 055
     Dates: start: 20151027
  3. IRON PILL [Concomitant]
     Active Substance: IRON
  4. LETROZOLE. [Concomitant]
     Active Substance: LETROZOLE
  5. FLOVENT DISKUS [Suspect]
     Active Substance: FLUTICASONE PROPIONATE
     Indication: CHRONIC OBSTRUCTIVE PULMONARY DISEASE
     Dosage: 2 PUFF(S), BID
     Route: 055
     Dates: start: 201512
  6. LOSARTAN. [Concomitant]
     Active Substance: LOSARTAN
  7. HYDROCODONE [Concomitant]
     Active Substance: HYDROCODONE
  8. FUROSEMIDE. [Concomitant]
     Active Substance: FUROSEMIDE
  9. METOPROLOL. [Concomitant]
     Active Substance: METOPROLOL

REACTIONS (3)
  - Incorrect dose administered [Not Recovered/Not Resolved]
  - Medication error [Recovered/Resolved]
  - Product use issue [Not Recovered/Not Resolved]

NARRATIVE: CASE EVENT DATE: 20151202
